FAERS Safety Report 10871525 (Version 1)
Quarter: 2015Q1

REPORT INFORMATION
  Report Type: Spontaneous
  Country: US (occurrence: US)
  Receive Date: 20150226
  Receipt Date: 20150226
  Transmission Date: 20150721
  Serious: Yes (Other)
  Sender: FDA-Public Use
  Company Number: US-GLAXOSMITHKLINE-US2015GSK025687

PATIENT
  Age: 53 Year
  Sex: Female

DRUGS (1)
  1. ALBUTEROL. [Suspect]
     Active Substance: ALBUTEROL
     Indication: CHRONIC OBSTRUCTIVE PULMONARY DISEASE

REACTIONS (7)
  - Metabolic acidosis [Unknown]
  - Dyspnoea [Unknown]
  - Blood lactic acid increased [Unknown]
  - Respiratory alkalosis [Unknown]
  - Tachycardia [Unknown]
  - Chronic obstructive pulmonary disease [Unknown]
  - Respiratory distress [Unknown]
